FAERS Safety Report 15675388 (Version 3)
Quarter: 2019Q1

REPORT INFORMATION
  Report Type: Spontaneous
  Country: DE (occurrence: DE)
  Receive Date: 20181130
  Receipt Date: 20190318
  Transmission Date: 20190417
  Serious: Yes (Hospitalization)
  Sender: FDA-Public Use
  Company Number: DE-ROCHE-2220572

PATIENT
  Age: 72 Year
  Sex: Male
  Weight: 95 kg

DRUGS (14)
  1. BISOPROLOL [Suspect]
     Active Substance: BISOPROLOL
     Indication: HYPERTENSION
     Dosage: 1 TBL AT 07.00 HRS AND 1 TBL AT 19.00HRS (INITIAL)
     Route: 048
     Dates: start: 2012
  2. CARDIODORON [Suspect]
     Active Substance: HERBALS
     Indication: PRODUCT USED FOR UNKNOWN INDICATION
     Dosage: 1 TBL AT 07.00 HRS  (INITIAL)
     Route: 048
     Dates: start: 2010, end: 20170131
  3. DACEPTON [Suspect]
     Active Substance: APOMORPHINE HYDROCHLORIDE
     Indication: PARKINSON^S DISEASE
     Dosage: 84.5 MG DAILY FROM 07.00 TO 22.00 HRS--} 124,0 MG/D 00:00 -23:59
     Route: 058
     Dates: start: 20160721
  4. MULTAQ [Suspect]
     Active Substance: DRONEDARONE
     Indication: PRODUCT USED FOR UNKNOWN INDICATION
     Dosage: 1 TBL AT 07.00HRS AND 1 TBL AT 19.00HRS (INITIAL)
     Route: 065
     Dates: start: 20170122, end: 20170126
  5. MADOPAR LT [Suspect]
     Active Substance: BENSERAZIDE HYDROCHLORIDE\LEVODOPA
     Indication: PARKINSON^S DISEASE
     Dosage: 4X1TBL PER DAY--} 5 X 1.75
     Route: 048
     Dates: start: 2013, end: 20170315
  6. NASENSPRAY AL [Suspect]
     Active Substance: XYLOMETAZOLINE HYDROCHLORIDE
     Indication: PRODUCT USED FOR UNKNOWN INDICATION
     Dosage: AS NEEDED (INITIAL)
     Route: 045
  7. APO-GO [Suspect]
     Active Substance: APOMORPHINE
     Indication: PARKINSON^S DISEASE
     Dosage: 5 MG MORNING (INITIAL)
     Route: 058
     Dates: start: 2013, end: 20170315
  8. PANTOPRAZOL [Suspect]
     Active Substance: PANTOPRAZOLE SODIUM
     Indication: PRODUCT USED FOR UNKNOWN INDICATION
     Dosage: 1 TBL MORNING, 1 TBL EVENING (INITIAL)
     Route: 048
     Dates: start: 2013, end: 20170213
  9. RIVOTRIL [Suspect]
     Active Substance: CLONAZEPAM
     Indication: PRODUCT USED FOR UNKNOWN INDICATION
     Dosage: 1 TBL AT 23.00HRS (INITIAL)
     Route: 048
     Dates: start: 2010, end: 20170213
  10. ONGENTYS [Concomitant]
     Active Substance: OPICAPONE
     Route: 065
  11. MADOPAR LT [Suspect]
     Active Substance: BENSERAZIDE HYDROCHLORIDE\LEVODOPA
     Indication: PARKINSON^S DISEASE
     Dosage: 1.1/2 TBL MORNING AT 06.00 HR AND 1 TBL AS NEEDED (INITIAL)
     Route: 048
     Dates: start: 2010, end: 20170315
  12. SEROQUEL [Concomitant]
     Active Substance: QUETIAPINE FUMARATE
     Route: 065
  13. LEVOCOMP RETARD [Suspect]
     Active Substance: CARBIDOPA\LEVODOPA
     Indication: PARKINSON^S DISEASE
     Dosage: 1 TBL EVENING AT 23.00 HRS(INITIAL)
     Route: 048
     Dates: end: 20170330
  14. LEVOCOMP RETARD [Suspect]
     Active Substance: CARBIDOPA\LEVODOPA
     Indication: PARKINSON^S DISEASE
     Dosage: 1 TBL IN THE NIGHT AT 23.00 HRS(INITIAL)
     Route: 048

REACTIONS (7)
  - Arrhythmia [Unknown]
  - Tooth fracture [Unknown]
  - Hallucination [Not Recovered/Not Resolved]
  - Nodule [Unknown]
  - Dyspnoea [Unknown]
  - Oral discomfort [Unknown]
  - Nightmare [Unknown]

NARRATIVE: CASE EVENT DATE: 20170125
